FAERS Safety Report 9135576 (Version 1)
Quarter: 2013Q1

REPORT INFORMATION
  Report Type: Spontaneous
  Country: IN (occurrence: None)
  Receive Date: 20130219
  Receipt Date: 20130219
  Transmission Date: 20140127
  Serious: Yes (Death, Other)
  Sender: FDA-Public Use
  Company Number: 2013SUN00103

PATIENT
  Age: 49 Year
  Sex: Male

DRUGS (2)
  1. IRINOTECAN HYDROCHLORIDE [Suspect]
     Indication: SMALL CELL LUNG CANCER
     Dosage: 65 MG/M2, DAY 1 AND DAY 8 OF THREE WEEKS CYCLE, UNKNOWN
  2. CISPLATIN [Suspect]
     Indication: SMALL CELL LUNG CANCER
     Dosage: 30 MG/M2, DAY 1 AND DAY 8 OF THREE WEEKS CYCLE, UNKNOWN

REACTIONS (2)
  - Tuberculosis [None]
  - Metastases to central nervous system [None]
